FAERS Safety Report 4483984-5 (Version None)
Quarter: 2004Q4

REPORT INFORMATION
  Report Type: 
  Country: None (occurrence: None)
  Receive Date: 20041025
  Receipt Date: 20041014
  Transmission Date: 20050328
  Serious: Yes (Hospitalization)
  Sender: FDA-Public Use
  Company Number: FR-ROCHE-383461

PATIENT
  Age: 39 Year
  Sex: Male
  Weight: 82 kg

DRUGS (6)
  1. ROFERON-A [Suspect]
     Dosage: ON DAYS ONE THREE AND FIVE OF AN UNSPECIFIED CYCLE
     Route: 058
     Dates: start: 20040706, end: 20040710
  2. PROLEUKIN [Suspect]
     Indication: DRUG USE FOR UNKNOWN INDICATION
     Dosage: ON DAYS ONE THROUGH FIVE OF AN UNSPECIFIED CYCLE
     Route: 058
     Dates: start: 20040706, end: 20040710
  3. ZOMETA [Suspect]
     Indication: DRUG USE FOR UNKNOWN INDICATION
     Route: 042
     Dates: start: 20040706, end: 20040710
  4. ASPEGIC 325 [Suspect]
     Indication: DRUG USE FOR UNKNOWN INDICATION
     Route: 065
     Dates: start: 20040706, end: 20040710
  5. FRAXODI [Concomitant]
  6. PARACETAMOL [Concomitant]

REACTIONS (3)
  - HAEMODIALYSIS [None]
  - RENAL FAILURE ACUTE [None]
  - TUMOUR LYSIS SYNDROME [None]
